FAERS Safety Report 17570465 (Version 2)
Quarter: 2020Q2

REPORT INFORMATION
  Report Type: Spontaneous
  Country: US (occurrence: US)
  Receive Date: 20200323
  Receipt Date: 20200403
  Transmission Date: 20200713
  Serious: Yes (Other)
  Sender: FDA-Public Use
  Company Number: US-AMGEN-USASP2020045448

PATIENT
  Sex: Female

DRUGS (2)
  1. RALOXIFENE. [Concomitant]
     Active Substance: RALOXIFENE
  2. PROLIA [Suspect]
     Active Substance: DENOSUMAB
     Indication: OSTEOPOROSIS POSTMENOPAUSAL
     Dosage: UNK, Q6MO
     Route: 065

REACTIONS (4)
  - Rib fracture [Unknown]
  - Nerve compression [Unknown]
  - Muscle spasms [Unknown]
  - Fall [Unknown]

NARRATIVE: CASE EVENT DATE: 20200207
